FAERS Safety Report 17186146 (Version 2)
Quarter: 2020Q1

REPORT INFORMATION
  Report Type: Spontaneous
  Country: GB (occurrence: GB)
  Receive Date: 20191220
  Receipt Date: 20200113
  Transmission Date: 20200409
  Serious: Yes (Other)
  Sender: FDA-Public Use
  Company Number: GB-GE HEALTHCARE LIFE SCIENCES-2019CSU006434

PATIENT

DRUGS (3)
  1. OMNIPAQUE [Suspect]
     Active Substance: IOHEXOL
     Indication: COMPUTERISED TOMOGRAM ABDOMEN
  2. OMNIPAQUE [Suspect]
     Active Substance: IOHEXOL
     Indication: COMPUTERISED TOMOGRAM THORAX
     Dosage: 80 ML, SINGLE VIA CANNULA SITED IN LEFT ANTE-CUBITAL FOSSA
     Route: 042
     Dates: start: 20191215, end: 20191215
  3. OMNIPAQUE [Suspect]
     Active Substance: IOHEXOL
     Indication: WEIGHT DECREASED

REACTIONS (1)
  - Anaphylactic reaction [Recovered/Resolved]

NARRATIVE: CASE EVENT DATE: 20191215
